FAERS Safety Report 4710278-2 (Version None)
Quarter: 2005Q3

REPORT INFORMATION
  Report Type: 
  Country: None (occurrence: None)
  Receive Date: 20050711
  Receipt Date: 20050627
  Transmission Date: 20060218
  Serious: Yes (Life-Threatening)
  Sender: FDA-Public Use
  Company Number: JP-JNJFOC-20050603215

PATIENT
  Sex: Male
  Weight: 66 kg

DRUGS (17)
  1. REMICADE [Suspect]
     Route: 042
  2. REMICADE [Suspect]
     Route: 042
  3. REMICADE [Suspect]
     Indication: RHEUMATOID ARTHRITIS
     Route: 042
  4. RHEUMATREX [Suspect]
     Route: 049
  5. RHEUMATREX [Suspect]
     Indication: RHEUMATOID ARTHRITIS
     Route: 049
  6. MUCOSTA [Concomitant]
     Indication: GASTRITIS
     Route: 049
  7. RELIFEN [Concomitant]
     Indication: PAIN
     Route: 049
  8. ISONIAZID [Concomitant]
     Indication: TUBERCULOSIS PROPHYLAXIS
     Route: 049
  9. GASTER D [Concomitant]
     Indication: GASTRITIS
     Route: 049
  10. MAINROL [Concomitant]
     Indication: HYPERTENSION
     Route: 049
  11. DAONIL [Concomitant]
     Indication: DIABETES MELLITUS
     Route: 049
  12. BASEN [Concomitant]
     Indication: DIABETES MELLITUS
     Dosage: 3 TABS
     Route: 049
  13. ITOROL [Concomitant]
     Indication: ANGINA PECTORIS
     Route: 049
  14. SIGMART [Concomitant]
     Indication: ANGINA PECTORIS
     Route: 049
  15. ASPIRIN [Concomitant]
     Indication: ANGINA PECTORIS
     Route: 049
  16. LENIMEC [Concomitant]
     Indication: HYPERTENSION
     Route: 049
  17. ANGINAL [Concomitant]
     Indication: ANGINA PECTORIS
     Route: 049

REACTIONS (4)
  - ORAL INTAKE REDUCED [None]
  - PNEUMOCYSTIS JIROVECI PNEUMONIA [None]
  - RASH GENERALISED [None]
  - STOMACH DISCOMFORT [None]
